FAERS Safety Report 7729027-9 (Version None)
Quarter: 2011Q3

REPORT INFORMATION
  Report Type: 
  Country: None (occurrence: None)
  Receive Date: 20110906
  Receipt Date: 20110826
  Transmission Date: 20111222
  Serious: Yes (Other)
  Sender: FDA-Public Use
  Company Number: CA-JNJFOC-20110813104

PATIENT
  Sex: Male
  Weight: 68.3 kg

DRUGS (4)
  1. REMICADE [Suspect]
     Indication: CROHN'S DISEASE
     Route: 042
     Dates: start: 20100126
  2. OXYCONTIN [Concomitant]
  3. ZOPLICONE [Concomitant]
  4. TRAZODONE HCL [Concomitant]

REACTIONS (2)
  - NAUSEA [None]
  - VOMITING [None]
